FAERS Safety Report 4367230-9 (Version None)
Quarter: 2004Q2

REPORT INFORMATION
  Report Type: 
  Country: None (occurrence: None)
  Receive Date: 20040526
  Receipt Date: 20040514
  Transmission Date: 20050107
  Serious: Yes (Death)
  Sender: FDA-Public Use
  Company Number: 2004-116006-NL

PATIENT
  Age: 74 Year
  Sex: Female
  Weight: 88 kg

DRUGS (28)
  1. REMERON SOLTAB [Suspect]
     Indication: DEPRESSION
     Dosage: 7.5 MG QD ORAL
     Route: 048
     Dates: start: 20040415, end: 20040416
  2. REMERON SOLTAB [Suspect]
     Indication: DEPRESSION
     Dosage: 15 MG QD ORAL
     Route: 048
     Dates: start: 20040416, end: 20040419
  3. REMERON SOLTAB [Suspect]
     Indication: DEPRESSION
     Dosage: 22.5 MG QD ORAL
     Route: 048
     Dates: start: 20040419, end: 20040421
  4. REMERON SOLTAB [Suspect]
     Indication: DEPRESSION
     Dosage: 30 MG QD ORAL
     Route: 048
     Dates: start: 20040421
  5. RITALIN [Suspect]
     Dosage: 2.5 MG BID ORAL
     Route: 048
     Dates: start: 20040416, end: 20040421
  6. RITALIN [Suspect]
     Dosage: 5 MG BID ORAL
     Route: 048
     Dates: start: 20040422, end: 20040426
  7. RITALIN [Suspect]
     Dosage: 7.5 MG BID ORAL
     Route: 048
     Dates: start: 20040426
  8. BEXTRA [Suspect]
     Indication: OSTEOARTHRITIS
     Dosage: 10 MG QD ORAL
     Route: 048
     Dates: start: 20040331, end: 20040415
  9. PREVACID [Suspect]
     Indication: GASTROOESOPHAGEAL REFLUX DISEASE
     Dosage: 30 MG QD ORAL
     Route: 048
     Dates: start: 20040423, end: 20040503
  10. AVANDIA [Suspect]
     Indication: DIABETES MELLITUS
     Dosage: 4 MG DAILY ORAL
     Route: 048
     Dates: start: 20040331, end: 20040420
  11. AVANDIA [Suspect]
     Indication: DIABETES MELLITUS
     Dosage: 8 MG DAILY ORAL
     Route: 048
     Dates: start: 20040420, end: 20040503
  12. NORVASC [Suspect]
     Indication: HYPERTENSION
     Dosage: 5 MG QD ORAL
     Route: 048
     Dates: start: 20040417, end: 20040503
  13. HYDROCHLOROTHIAZIDE [Concomitant]
  14. LEVAQUIN [Concomitant]
  15. ATIVAN [Concomitant]
  16. ACTONEL [Concomitant]
  17. DILANTIN [Concomitant]
  18. WYGESIC [Concomitant]
  19. ALTACE [Concomitant]
  20. OS-CAL [Concomitant]
  21. CATAPRES [Concomitant]
  22. PERSANTIN INJ [Concomitant]
  23. COLACE [Concomitant]
  24. LEXAPRO [Concomitant]
  25. PEPCID [Concomitant]
  26. COUMADIN [Concomitant]
  27. FLONASE [Concomitant]
  28. GLYBURIDE [Concomitant]

REACTIONS (6)
  - ASTHENIA [None]
  - DEPRESSED LEVEL OF CONSCIOUSNESS [None]
  - DYSARTHRIA [None]
  - HEPATIC FAILURE [None]
  - OEDEMA [None]
  - RENAL FAILURE [None]
